FAERS Safety Report 5606488-2 (Version None)
Quarter: 2008Q1

REPORT INFORMATION
  Report Type: 
  Country: None (occurrence: None)
  Receive Date: 20080129
  Receipt Date: 20080118
  Transmission Date: 20080703
  Serious: Yes (Other)
  Sender: FDA-Public Use
  Company Number: SE-JNJFOC-20080106576

PATIENT
  Age: 50 Year

DRUGS (7)
  1. REMICADE [Suspect]
     Route: 042
  2. REMICADE [Suspect]
     Indication: SPONDYLITIS
     Route: 042
  3. METHOTREXATE [Suspect]
     Indication: DRUG USE FOR UNKNOWN INDICATION
  4. ARTONIL [Concomitant]
  5. FOLACIN [Concomitant]
  6. CONFORTID [Concomitant]
  7. PREDNISOLONE [Concomitant]

REACTIONS (4)
  - ANAEMIA [None]
  - DIARRHOEA HAEMORRHAGIC [None]
  - HEPATIC FUNCTION ABNORMAL [None]
  - SYNCOPE [None]
